FAERS Safety Report 24389563 (Version 1)
Quarter: 2024Q4

REPORT INFORMATION
  Report Type: Other
  Country: ES (occurrence: ES)
  Receive Date: 20241003
  Receipt Date: 20241003
  Transmission Date: 20250115
  Serious: Yes (Other)
  Sender: ZYDUS PHARM
  Company Number: None

PATIENT

DRUGS (13)
  1. ATORVASTATIN [Suspect]
     Active Substance: ATORVASTATIN
     Indication: Hyperlipidaemia
     Dosage: UNK
     Route: 002
     Dates: start: 20240806, end: 20240830
  2. ACETAMINOPHEN\TRAMADOL HYDROCHLORIDE [Suspect]
     Active Substance: ACETAMINOPHEN\TRAMADOL HYDROCHLORIDE
     Indication: Spondylolysis
     Dosage: UNK
     Route: 048
     Dates: start: 20150812
  3. PALEXIA [Suspect]
     Active Substance: TAPENTADOL HYDROCHLORIDE
     Indication: Spondylitis
     Dosage: 50 MILLIGRAM
     Route: 048
     Dates: start: 20240627
  4. TOPAMAX [Suspect]
     Active Substance: TOPIRAMATE
     Indication: Obesity
     Dosage: 50 MILLIGRAM
     Route: 048
     Dates: start: 20130730
  5. TOPAMAX [Suspect]
     Active Substance: TOPIRAMATE
     Dosage: 100 MILLIGRAM
     Route: 048
     Dates: start: 20140130
  6. SACUBITRIL\VALSARTAN [Concomitant]
     Active Substance: SACUBITRIL\VALSARTAN
     Indication: Cardiac failure congestive
     Dosage: UNK
     Route: 048
     Dates: start: 20240313
  7. XARELTO [Concomitant]
     Active Substance: RIVAROXABAN
     Indication: Cardiac failure congestive
     Dosage: 20 MILLIGRAM
     Route: 048
     Dates: start: 20240313
  8. ALDACTONE [Concomitant]
     Active Substance: SPIRONOLACTONE
     Indication: Cardiac failure congestive
     Dosage: 25 MILLIGRAM
     Route: 048
     Dates: start: 20240314
  9. PANTOPRAZOLE [Concomitant]
     Active Substance: PANTOPRAZOLE
     Indication: Product used for unknown indication
     Dosage: 40 MILLIGRAM
     Route: 048
     Dates: start: 20120705
  10. BISOPROLOL FUMARATE [Concomitant]
     Active Substance: BISOPROLOL FUMARATE
     Indication: Coronary artery bypass
     Dosage: 25 MILLIGRAM
     Route: 048
     Dates: start: 20240202
  11. CLOPIDOGREL TARBIS [Concomitant]
     Indication: Cardiac failure congestive
     Dosage: 75 MILLIGRAM
     Route: 048
     Dates: start: 20240314
  12. FUROSEMIDA COMBIX [Concomitant]
     Indication: Cardiac disorder
     Dosage: 20 MILLIGRAM
     Route: 048
     Dates: start: 20240313
  13. SILODOSIN [Concomitant]
     Active Substance: SILODOSIN
     Indication: Haematuria
     Dosage: 8 MILLIGRAM
     Route: 048
     Dates: start: 20240220

REACTIONS (3)
  - Drug interaction [Recovered/Resolved]
  - Hypersomnia [Recovered/Resolved]
  - Abdominal discomfort [Recovered/Resolved]

NARRATIVE: CASE EVENT DATE: 20240808
